FAERS Safety Report 4898412-5 (Version None)
Quarter: 2006Q1

REPORT INFORMATION
  Report Type: 
  Country: None (occurrence: None)
  Receive Date: 20060131
  Receipt Date: 20060131
  Transmission Date: 20060701
  Serious: Yes (Hospitalization)
  Sender: FDA-Public Use
  Company Number: None

PATIENT
  Age: 61 Year
  Sex: Female
  Weight: 101.1521 kg

DRUGS (4)
  1. VELCADE [Suspect]
     Indication: SALIVARY GLAND CANCER
     Dosage: 1.43 MG DAYS 1, 4, 8 AND 11 IV
     Route: 042
     Dates: start: 20051227, end: 20060120
  2. CISPLATIN [Suspect]
     Dosage: 61.5 MG WEEKLY IV DRIP
     Route: 041
     Dates: start: 20051227, end: 20060117
  3. SYNTHROID [Concomitant]
  4. NEXIUM [Concomitant]

REACTIONS (6)
  - ASTHENIA [None]
  - DEHYDRATION [None]
  - DIZZINESS [None]
  - FATIGUE [None]
  - NAUSEA [None]
  - ORAL INTAKE REDUCED [None]
